FAERS Safety Report 17848966 (Version 1)
Quarter: 2020Q2

REPORT INFORMATION
  Report Type: Spontaneous
  Country: US (occurrence: US)
  Receive Date: 20200602
  Receipt Date: 20200602
  Transmission Date: 20200714
  Serious: No
  Sender: FDA-Public Use
  Company Number: NVSC2020US151220

PATIENT
  Age: 46 Year
  Sex: Female

DRUGS (2)
  1. VOTRIENT [Suspect]
     Active Substance: PAZOPANIB HYDROCHLORIDE
     Indication: BONE CANCER
     Dosage: 400 MG, QD
     Route: 048
     Dates: start: 202005
  2. VOTRIENT [Suspect]
     Active Substance: PAZOPANIB HYDROCHLORIDE
     Indication: CHONDROPATHY

REACTIONS (3)
  - Myalgia [Recovering/Resolving]
  - Pain [Recovering/Resolving]
  - Venous pressure jugular increased [Unknown]

NARRATIVE: CASE EVENT DATE: 202005
